FAERS Safety Report 10059106 (Version 1)
Quarter: 2014Q2

REPORT INFORMATION
  Report Type: Spontaneous
  Country: US (occurrence: US)
  Receive Date: 20140404
  Receipt Date: 20140404
  Transmission Date: 20141212
  Serious: No
  Sender: FDA-Public Use
  Company Number: US-GLAXOSMITHKLINE-A1018976A

PATIENT
  Age: 31 Year
  Sex: 0

DRUGS (1)
  1. ALLI [Suspect]
     Indication: WEIGHT DECREASED
     Route: 065
     Dates: start: 20130401, end: 20130404

REACTIONS (5)
  - Dysuria [Unknown]
  - Chest pain [Unknown]
  - Dizziness [Unknown]
  - Pruritus [Unknown]
  - Feeling abnormal [Unknown]
